FAERS Safety Report 4588912-X (Version None)
Quarter: 2005Q1

REPORT INFORMATION
  Report Type: 
  Country: None (occurrence: None)
  Receive Date: 20050216
  Receipt Date: 20050204
  Transmission Date: 20050727
  Serious: Yes (Death)
  Sender: FDA-Public Use
  Company Number: 2005025919

PATIENT
  Age: 53 Year
  Sex: Male
  Weight: 104.3273 kg

DRUGS (11)
  1. LIPITOR [Suspect]
     Indication: BLOOD CHOLESTEROL
     Dosage: 10 MG (10 MG, 1 IN 1 D), ORAL
     Route: 048
     Dates: start: 20041208, end: 20041208
  2. HYDROXYZINE [Concomitant]
  3. DESMOPRESSIN (DESMOPRESSIN) [Concomitant]
  4. TRIAMTERENE (TRIAMTERENE) [Concomitant]
  5. HYDROCHLOROTHIAZIDE [Concomitant]
  6. LORATADINE [Concomitant]
  7. ALL OTHER THERAPEUTIC PRODUCTS (ALL OTHER THERAPEUTIC PRODUCTS) [Concomitant]
  8. LORAZEPAM [Concomitant]
  9. TAMSULOSIN (TAMSULOSIN) [Concomitant]
  10. OLANZAPINE [Concomitant]
  11. ATENOLOL [Concomitant]

REACTIONS (2)
  - DRUG INTERACTION [None]
  - SUDDEN DEATH [None]
